FAERS Safety Report 18578326 (Version 1)
Quarter: 2020Q4

REPORT INFORMATION
  Report Type: Spontaneous
  Country: DK (occurrence: DK)
  Receive Date: 20201204
  Receipt Date: 20201204
  Transmission Date: 20210114
  Serious: Yes (Hospitalization)
  Sender: FDA-Public Use
  Company Number: DK-TEVA-2020-DK-1854393

PATIENT
  Age: 87 Year
  Sex: Female

DRUGS (1)
  1. COLREFUZ [Suspect]
     Active Substance: COLCHICINE
     Indication: GOUT
     Dosage: STRENGTH: 500 MICROGRAM
     Route: 048
     Dates: start: 20201007, end: 20201106

REACTIONS (3)
  - Nausea [Unknown]
  - Chronic kidney disease [Recovered/Resolved]
  - Diarrhoea [Recovered/Resolved]

NARRATIVE: CASE EVENT DATE: 20201007
